FAERS Safety Report 6365160 (Version 2)
Quarter: 2014Q2

REPORT INFORMATION
  Report Type: Spontaneous
  Country: US (occurrence: US)
  Receive Date: 20070530
  Receipt Date: 20140510
  Transmission Date: 20141212
  Serious: No
  Sender: FDA-Public Use
  Company Number: 2007PV032473

PATIENT
  Age: 53 Year
  Sex: Male
  Weight: 137.44 kg

DRUGS (2)
  1. BYETTA PEN DISPOSABLE [Suspect]
     Indication: TYPE 2 DIABETES MELLITUS
     Route: 058
     Dates: start: 20070308
  2. NEXIUM [Concomitant]
     Route: 048

REACTIONS (10)
  - Weight decreased [Unknown]
  - Dyspepsia [Recovering/Resolving]
  - Constipation [Recovering/Resolving]
  - Decreased appetite [Not Recovered/Not Resolved]
  - Drug ineffective [Unknown]
  - Nausea [Recovering/Resolving]
  - Somnolence [Recovering/Resolving]
  - Aggression [Unknown]
  - Blood glucose decreased [Unknown]
  - Incorrect product storage [Unknown]
